FAERS Safety Report 9525803 (Version 1)
Quarter: 2013Q3

REPORT INFORMATION
  Report Type: Spontaneous
  Country: US (occurrence: US)
  Receive Date: 20130916
  Receipt Date: 20130916
  Transmission Date: 20140515
  Serious: Yes (Other)
  Sender: FDA-Public Use
  Company Number: US-BIOGENIDEC-2013BI088531

PATIENT
  Sex: Female

DRUGS (2)
  1. AVONEX [Suspect]
     Indication: MULTIPLE SCLEROSIS
     Route: 030
     Dates: start: 20010329
  2. AVONEX [Suspect]
     Indication: MULTIPLE SCLEROSIS
     Route: 030
     Dates: start: 20100727

REACTIONS (10)
  - Pancreatitis [Not Recovered/Not Resolved]
  - Fear [Recovered/Resolved]
  - Cyst [Recovered/Resolved]
  - General symptom [Unknown]
  - Scratch [Unknown]
  - Sleep disorder [Unknown]
  - Malaise [Recovered/Resolved]
  - Pruritus [Unknown]
  - Depression [Unknown]
  - Fatigue [Unknown]
